FAERS Safety Report 20767706 (Version 2)
Quarter: 2022Q3

REPORT INFORMATION
  Report Type: Report from Study
  Country: US (occurrence: US)
  Receive Date: 20220429
  Receipt Date: 20220717
  Transmission Date: 20221027
  Serious: No
  Sender: FDA-Public Use
  Company Number: US-ABBVIE-22K-163-4373411-00

PATIENT
  Age: 72 Year
  Sex: Female
  Weight: 49.940 kg

DRUGS (7)
  1. DUOPA [Suspect]
     Active Substance: CARBIDOPA\LEVODOPA
     Indication: Parkinson^s disease
     Route: 050
     Dates: start: 202204
  2. DUOPA [Suspect]
     Active Substance: CARBIDOPA\LEVODOPA
  3. ALENDRONATE SODIUM [Concomitant]
     Active Substance: ALENDRONATE SODIUM
     Indication: Osteoporosis
     Dosage: 70MG/70ML WEEKLY
  4. ATORVASTATIN [Concomitant]
     Active Substance: ATORVASTATIN
     Indication: Blood cholesterol
  5. METOPROLOL TARTRATE [Concomitant]
     Active Substance: METOPROLOL TARTRATE
     Indication: Blood pressure management
  6. PRASUGREL [Concomitant]
     Active Substance: PRASUGREL
     Indication: Anticoagulant therapy
  7. ASPIRIN [Concomitant]
     Active Substance: ASPIRIN
     Indication: Prophylaxis

REACTIONS (4)
  - Lip injury [Recovered/Resolved]
  - Injury associated with device [Recovered/Resolved]
  - Malaise [Recovered/Resolved]
  - Drug ineffective [Recovered/Resolved]

NARRATIVE: CASE EVENT DATE: 20220401
